FAERS Safety Report 5939506-2 (Version None)
Quarter: 2008Q4

REPORT INFORMATION
  Report Type: 
  Country: None (occurrence: None)
  Receive Date: 20081030
  Receipt Date: 20081014
  Transmission Date: 20090506
  Serious: Yes (Other)
  Sender: FDA-Public Use
  Company Number: SPV1-2008-02208

PATIENT
  Age: 20 Year
  Sex: Male
  Weight: 60.3 kg

DRUGS (3)
  1. LIALDA [Suspect]
     Indication: COLITIS ULCERATIVE
     Dosage: 4.8 G, 1X/DAY:QD,ORAL; 2.4 G, 1X/DAY:QD,ORAL;
     Route: 048
     Dates: start: 20080928, end: 20081010
  2. LIALDA [Suspect]
     Indication: CROHN'S DISEASE
     Dosage: 4.8 G, 1X/DAY:QD,ORAL; 2.4 G, 1X/DAY:QD,ORAL;
     Route: 048
     Dates: start: 20080928, end: 20081010
  3. PROTEIN SUPPLEMENTS [Concomitant]

REACTIONS (1)
  - HAEMATURIA [None]
